FAERS Safety Report 17144213 (Version 6)
Quarter: 2020Q1

REPORT INFORMATION
  Report Type: Spontaneous
  Country: US (occurrence: US)
  Receive Date: 20191212
  Receipt Date: 20200213
  Transmission Date: 20200409
  Serious: Yes (Other)
  Sender: FDA-Public Use
  Company Number: US-PFIZER INC-2019533540

PATIENT
  Age: 67 Year
  Sex: Female
  Weight: 79.37 kg

DRUGS (10)
  1. XALKORI [Suspect]
     Active Substance: CRIZOTINIB
     Indication: LUNG NEOPLASM MALIGNANT
     Dosage: 250 MG, ONCE A DAY
     Dates: start: 20190515
  2. RESTASIS [Concomitant]
     Active Substance: CYCLOSPORINE
     Dosage: UNK, AS NEEDED (EYE DROPS 5 TO 8 TIMES A DAY AS NEEDED)
  3. EVOXAC [Concomitant]
     Active Substance: CEVIMELINE HYDROCHLORIDE
     Dosage: 90 MG, DAILY (3 A DAY AT 30 MG )
     Dates: start: 201911
  4. RESTASIS [Concomitant]
     Active Substance: CYCLOSPORINE
     Indication: SJOGREN^S SYNDROME
     Dosage: UNK, 2X/DAY (2 TIMES A DAY)
  5. FISH OIL [Concomitant]
     Active Substance: FISH OIL
     Indication: SJOGREN^S SYNDROME
     Dosage: 1000 MG, 2X/DAY
  6. XALKORI [Suspect]
     Active Substance: CRIZOTINIB
     Dosage: 200 MG, TWICE A DAY
     Dates: start: 20190628
  7. CEVIMELINE HYDROCHLORIDE. [Concomitant]
     Active Substance: CEVIMELINE HYDROCHLORIDE
     Indication: SJOGREN^S SYNDROME
     Dosage: 90 MG, DAILY (3 A DAY AT 30 MG )
  8. EVOXAC [Concomitant]
     Active Substance: CEVIMELINE HYDROCHLORIDE
     Indication: SJOGREN^S SYNDROME
     Dosage: 90 MG, DAILY (3 A DAY AT 30 MG )
     Dates: start: 201910
  9. OMEGA 3 [FISH OIL] [Concomitant]
     Active Substance: FISH OIL
     Indication: SJOGREN^S SYNDROME
     Dosage: 300 MG, UNK
  10. EVOXAC [Concomitant]
     Active Substance: CEVIMELINE HYDROCHLORIDE
     Dosage: 90 MG, DAILY (3 A DAY AT 30 MG )
     Dates: start: 201912

REACTIONS (4)
  - White blood cell count decreased [Unknown]
  - Sjogren^s syndrome [Not Recovered/Not Resolved]
  - Liver function test increased [Unknown]
  - Condition aggravated [Not Recovered/Not Resolved]
